FAERS Safety Report 7081613-8 (Version None)
Quarter: 2010Q4

REPORT INFORMATION
  Report Type: 
  Country: None (occurrence: None)
  Receive Date: 20101103
  Receipt Date: 20101021
  Transmission Date: 20110411
  Serious: Yes (Hospitalization, Disabling, Other)
  Sender: FDA-Public Use
  Company Number: US-ELI_LILLY_AND_COMPANY-US201010005460

PATIENT
  Age: 64 Year
  Sex: Male

DRUGS (8)
  1. CIALIS [Suspect]
     Indication: ERECTILE DYSFUNCTION
     Dosage: 5 MG, AS NEEDED
  2. CIALIS [Suspect]
     Dosage: 10 MG, AS NEEDED
  3. CIALIS [Suspect]
     Dosage: 20 MG, AS NEEDED
  4. OTHER ANTIHYPERTENSIVES [Concomitant]
     Dosage: 1 D/F, UNK
  5. DIURETICS [Concomitant]
     Dosage: 1 D/F, UNK
  6. HYDROCHLOROTHIAZIDE [Concomitant]
     Dosage: 1 D/F, UNK
  7. LOSARTAN [Concomitant]
     Indication: BLOOD PRESSURE
     Dosage: 1 D/F, UNK
  8. LOVASTATIN [Concomitant]
     Indication: BLOOD CHOLESTEROL
     Dosage: 1 D/F, UNK

REACTIONS (10)
  - ACCIDENT [None]
  - BLINDNESS UNILATERAL [None]
  - DIZZINESS [None]
  - FALL [None]
  - HEAD INJURY [None]
  - HEADACHE [None]
  - STRESS [None]
  - THERAPEUTIC RESPONSE DECREASED [None]
  - THERAPEUTIC RESPONSE INCREASED [None]
  - WRONG TECHNIQUE IN DRUG USAGE PROCESS [None]
